FAERS Safety Report 12008036 (Version 1)
Quarter: 2016Q1

REPORT INFORMATION
  Report Type: Spontaneous
  Country: US (occurrence: US)
  Receive Date: 20160205
  Receipt Date: 20160205
  Transmission Date: 20160526
  Serious: No
  Sender: FDA-Public Use
  Company Number: US-009507513-1602USA001925

PATIENT
  Age: 82 Year
  Sex: Male

DRUGS (4)
  1. COUMADIN [Concomitant]
     Active Substance: WARFARIN SODIUM
     Dosage: 1.4286 MG (5 MG, THURSDAY AND SUNDAY)
  2. FINASTERIDE. [Suspect]
     Active Substance: FINASTERIDE
     Dosage: 5 MG, 1 IN 1 D
     Route: 048
     Dates: start: 20151204
  3. NORTHERA [Interacting]
     Active Substance: DROXIDOPA
     Dosage: 1800 MG, QD
  4. COUMADIN [Concomitant]
     Active Substance: WARFARIN SODIUM
     Dosage: 5.3571 MG (7.5 MG MONDAY, TUESDAY, WEDNESDAY, FRIDAY AND SATURDAY

REACTIONS (6)
  - Gait disturbance [Unknown]
  - Musculoskeletal stiffness [Unknown]
  - Myalgia [Unknown]
  - Arthralgia [Unknown]
  - Asthenia [Unknown]
  - Drug interaction [Unknown]

NARRATIVE: CASE EVENT DATE: 201512
